FAERS Safety Report 11129085 (Version 2)
Quarter: 2015Q2

REPORT INFORMATION
  Report Type: Spontaneous
  Country: US (occurrence: US)
  Receive Date: 20150521
  Receipt Date: 20150609
  Transmission Date: 20150821
  Serious: No
  Sender: FDA-Public Use
  Company Number: US-PFIZER INC-2015167440

PATIENT
  Age: 73 Year
  Sex: Female

DRUGS (3)
  1. LATANOPROST. [Suspect]
     Active Substance: LATANOPROST
     Indication: GLAUCOMA
     Dosage: 0.005 %, 1X/DAY(1 TIMES PER NIGHT IN AN EYE)
     Route: 047
     Dates: start: 201202
  2. LUMIGAN [Suspect]
     Active Substance: BIMATOPROST
  3. TRAVATAN [Suspect]
     Active Substance: TRAVOPROST

REACTIONS (5)
  - Eye irritation [Recovered/Resolved]
  - Product substitution issue [Unknown]
  - Ocular hyperaemia [Unknown]
  - Foreign body sensation in eyes [Unknown]
  - Dry eye [Recovered/Resolved]

NARRATIVE: CASE EVENT DATE: 201202
